FAERS Safety Report 10387051 (Version 1)
Quarter: 2014Q1

REPORT INFORMATION
  Report Type: Spontaneous
  Country: US (occurrence: None)
  Receive Date: 20140306
  Receipt Date: 20140306
  Transmission Date: 20141002
  Serious: Yes (Hospitalization, Other)
  Sender: FDA-Public Use
  Company Number: 163-21880-13093963

PATIENT
  Age: 70 Year
  Sex: Female

DRUGS (21)
  1. REVLIMID [Suspect]
     Indication: PLASMA CELL MYELOMA
     Route: 048
     Dates: start: 200904
  2. ESOMEPRAZOLE MAGNESIUM (ESOMEPRAZOLE MAGNESIUM) [Concomitant]
  3. CARDIZEM (DILTIAZEM HYDROCHLORIDE) [Concomitant]
  4. ANASTROZOLE (ANASTROZOLE) [Concomitant]
  5. JANUVIA (SITAGLIPTIN PHOSPHATE) [Concomitant]
  6. PREDNISONE (PREDNISONE) [Concomitant]
  7. POTASSIUM CHLORIDE (POTASSIUM CHLORIDE) [Concomitant]
  8. COUMADIN (WARFARIN SODIUM) [Concomitant]
  9. SOTALOLOL (SOTALOLOL) [Concomitant]
  10. DILTIAZEM (DILTIAZEM) [Concomitant]
  11. GLIPIZIDE (GLIPIZIDE) [Concomitant]
  12. METFORMIN (METFORMIN) [Concomitant]
  13. LEVOTHYROXINE (LEVOTHYROXINE) [Concomitant]
  14. FEBUXOSTAT (FEBUXOSTAT) [Concomitant]
  15. CYMBALTA (DULOXETINE HYDROCHLORIDE) [Concomitant]
  16. METOPROLOL SUCCINATE (METOPROLOL SUCCINATE) [Concomitant]
  17. MULTIVITAMINS WITH LYCOPENE (LYCOPENE W/MINERALS NOS/VITAMINS NOS) [Concomitant]
  18. BORTEZOMIB (BORTEZOMIB) [Concomitant]
  19. CALCIUM CARBONATE - VITAMIN D2 (CALCIUM D3 ^STADA^) [Concomitant]
  20. COLESTIPOL (COLESTIPOL) [Concomitant]
  21. FUROSEMIDE (FUROSEMIDE) [Concomitant]

REACTIONS (1)
  - Supraventricular tachycardia [None]
